FAERS Safety Report 7517153-9 (Version None)
Quarter: 2011Q2

REPORT INFORMATION
  Report Type: 
  Country: None (occurrence: None)
  Receive Date: 20110601
  Receipt Date: 20110531
  Transmission Date: 20111010
  Serious: Yes (Hospitalization)
  Sender: FDA-Public Use
  Company Number: US-PFIZER INC-2011113152

PATIENT
  Sex: Male
  Weight: 83.9 kg

DRUGS (4)
  1. NEXIUM [Suspect]
     Indication: GASTROOESOPHAGEAL REFLUX DISEASE
     Dosage: 40 MG, DAILY
     Route: 048
  2. PROMETHAZINE HYDROCHLORIDE [Suspect]
     Indication: NAUSEA
     Dosage: 50 MG, AS NEEDED
     Route: 048
  3. DOXYCYCLINE [Suspect]
     Dosage: 100 MG, 2X/DAY
     Route: 048
     Dates: start: 20100101
  4. PROTONIX [Suspect]
     Indication: GASTROOESOPHAGEAL REFLUX DISEASE
     Dosage: 40 MG, 1 IN 12 HR
     Route: 042
     Dates: start: 20100723, end: 20110422

REACTIONS (2)
  - DIVERTICULITIS [None]
  - DRUG SCREEN POSITIVE [None]
